FAERS Safety Report 15463160 (Version 5)
Quarter: 2021Q1

REPORT INFORMATION
  Report Type: Report from Study
  Country: PT (occurrence: PT)
  Receive Date: 20181004
  Receipt Date: 20210215
  Transmission Date: 20210419
  Serious: Yes (Life-Threatening, Other)
  Sender: FDA-Public Use
  Company Number: PT-BRISTOL-MYERS SQUIBB COMPANY-BMS-2018-088015

PATIENT
  Age: 26 Year
  Sex: Male

DRUGS (21)
  1. CLOXAZOLAM [Suspect]
     Active Substance: CLOXAZOLAM
     Indication: HIV INFECTION
  2. METHADONE HYDROCHLORIDE. [Suspect]
     Active Substance: METHADONE HYDROCHLORIDE
     Indication: CHRONIC HEPATITIS C
     Dosage: UNK
     Route: 048
  3. STAVUDINE. [Suspect]
     Active Substance: STAVUDINE
     Indication: HIV INFECTION CDC CATEGORY A
  4. TIAPRIDE [Suspect]
     Active Substance: TIAPRIDE
     Indication: CHRONIC HEPATITIS C
  5. BIPERIDEN [Suspect]
     Active Substance: BIPERIDEN
     Indication: HIV INFECTION
     Route: 048
  6. BIPERIDEN [Suspect]
     Active Substance: BIPERIDEN
     Indication: CHRONIC HEPATITIS C
  7. CYAMEMAZINE [Suspect]
     Active Substance: CYAMEMAZINE
     Indication: HIV INFECTION
     Route: 048
  8. DIDANOSINE. [Suspect]
     Active Substance: DIDANOSINE
     Indication: CHRONIC HEPATITIS C
     Dosage: UNK
     Route: 048
  9. DIDANOSINE. [Suspect]
     Active Substance: DIDANOSINE
     Indication: HIV INFECTION CDC CATEGORY A
  10. LOPINAVIR/RITONAVIR [Suspect]
     Active Substance: LOPINAVIR\RITONAVIR
     Indication: CHRONIC HEPATITIS C
     Dosage: UNK
     Route: 048
  11. CLOXAZOLAM [Suspect]
     Active Substance: CLOXAZOLAM
     Indication: CHRONIC HEPATITIS C
     Dosage: UNK
     Route: 048
  12. OLANZAPINE. [Suspect]
     Active Substance: OLANZAPINE
     Indication: HIV INFECTION
  13. CYAMEMAZINE [Suspect]
     Active Substance: CYAMEMAZINE
     Indication: CHRONIC HEPATITIS C
  14. STAVUDINE. [Suspect]
     Active Substance: STAVUDINE
     Indication: CHRONIC HEPATITIS C
     Route: 048
  15. METHADONE HYDROCHLORIDE. [Suspect]
     Active Substance: METHADONE HYDROCHLORIDE
     Indication: HIV INFECTION
  16. LOPINAVIR/RITONAVIR [Suspect]
     Active Substance: LOPINAVIR\RITONAVIR
     Indication: HIV INFECTION
  17. TIAPRIDE [Suspect]
     Active Substance: TIAPRIDE
     Indication: HIV INFECTION
     Dosage: UNK
     Route: 048
  18. RISPERIDONE. [Suspect]
     Active Substance: RISPERIDONE
     Indication: HIV INFECTION
  19. STAVUDINE. [Suspect]
     Active Substance: STAVUDINE
     Indication: HEPATITIS C
  20. OLANZAPINE. [Suspect]
     Active Substance: OLANZAPINE
     Indication: CHRONIC HEPATITIS C
     Dosage: UNK
     Route: 048
  21. RISPERIDONE. [Suspect]
     Active Substance: RISPERIDONE
     Indication: CHRONIC HEPATITIS C
     Route: 048

REACTIONS (3)
  - Drug-induced liver injury [Recovered/Resolved]
  - Off label use [Unknown]
  - Hepatic fibrosis [Unknown]
